FAERS Safety Report 9999926 (Version 2)
Quarter: 2014Q2

REPORT INFORMATION
  Report Type: Report from Study
  Country: IT (occurrence: IT)
  Receive Date: 20140312
  Receipt Date: 20140421
  Transmission Date: 20141212
  Serious: Yes (Hospitalization)
  Sender: FDA-Public Use
  Company Number: IT-UCBSA-114244

PATIENT
  Age: 77 Year
  Sex: Female
  Weight: 48 kg

DRUGS (2)
  1. CERTOLIZUMAB PEGOL [Suspect]
     Indication: RHEUMATOID ARTHRITIS
     Dosage: NUMBER OF DOSES RECEIVED: 8
     Route: 058
     Dates: start: 20131209, end: 20140217
  2. METHOTREXATE [Concomitant]
     Indication: RHEUMATOID ARTHRITIS
     Route: 058
     Dates: start: 201308, end: 20140212

REACTIONS (1)
  - Bronchopneumonia [Recovered/Resolved]
